FAERS Safety Report 26189964 (Version 1)
Quarter: 2025Q4

REPORT INFORMATION
  Report Type: Spontaneous
  Country: US (occurrence: US)
  Receive Date: 20251223
  Receipt Date: 20251223
  Transmission Date: 20260117
  Serious: Yes (Life-Threatening, Hospitalization, Other)
  Sender: SOMERSET THERAPEUTICS, LLC
  Company Number: US-MIT-25-75-US-2025-SOM-LIT-00536

PATIENT
  Age: 84 Year
  Sex: Female
  Weight: 50 kg

DRUGS (4)
  1. ROPIVACAINE HYDROCHLORIDE [Suspect]
     Active Substance: ROPIVACAINE HYDROCHLORIDE
     Indication: Local anaesthesia
     Dosage: (5 MG/ML) WAS INJECTED IN 3 TO 5-ML ALIQUOTS
     Route: 065
  2. LIDOCAINE [Suspect]
     Active Substance: LIDOCAINE
     Indication: Local anaesthesia
     Route: 065
  3. ACETAMINOPHEN [Concomitant]
     Active Substance: ACETAMINOPHEN
     Indication: Pain
     Route: 042
  4. HYDROMORPHONE [Concomitant]
     Active Substance: HYDROMORPHONE
     Indication: Pain
     Route: 042

REACTIONS (6)
  - Local anaesthetic systemic toxicity [Recovered/Resolved]
  - Generalised tonic-clonic seizure [Recovered/Resolved]
  - Cardiac arrest [Recovered/Resolved]
  - Atrial fibrillation [Recovered/Resolved]
  - Ventricular tachycardia [Recovered/Resolved]
  - Hypotension [Recovered/Resolved]
